FAERS Safety Report 16303044 (Version 1)
Quarter: 2019Q2

REPORT INFORMATION
  Report Type: Report from Study
  Country: US (occurrence: US)
  Receive Date: 20190513
  Receipt Date: 20190513
  Transmission Date: 20190711
  Serious: Yes (Other)
  Sender: FDA-Public Use
  Company Number: US-AUROBINDO-AUR-APL-2019-025885

PATIENT

DRUGS (1)
  1. LIDOCAINE. [Suspect]
     Active Substance: LIDOCAINE
     Indication: RENAL PAIN
     Dosage: 1.5 MILLIGRAM/KILOGRAM FOR 20 MINUTES
     Route: 042

REACTIONS (1)
  - Bradycardia [Unknown]
